FAERS Safety Report 14216267 (Version 2)
Quarter: 2017Q4

REPORT INFORMATION
  Report Type: Spontaneous
  Country: US (occurrence: US)
  Receive Date: 20171122
  Receipt Date: 20171221
  Transmission Date: 20180321
  Serious: Yes (Hospitalization, Other)
  Sender: FDA-Public Use
  Company Number: US-GLAXOSMITHKLINE-US2017GSK178364

PATIENT
  Age: 76 Year
  Sex: Female

DRUGS (4)
  1. SEREVENT DISKUS [Suspect]
     Active Substance: SALMETEROL XINAFOATE
     Indication: CHRONIC OBSTRUCTIVE PULMONARY DISEASE
     Dosage: UNK, U
     Dates: start: 201712
  2. FLOVENT [Suspect]
     Active Substance: FLUTICASONE PROPIONATE
     Indication: CHRONIC OBSTRUCTIVE PULMONARY DISEASE
  3. TEGRETOL [Suspect]
     Active Substance: CARBAMAZEPINE
     Indication: TRIGEMINAL NEURALGIA
     Dosage: UNK
     Dates: start: 201710
  4. FLOVENT [Suspect]
     Active Substance: FLUTICASONE PROPIONATE
     Indication: ASTHMA
     Dosage: UNK
     Dates: start: 201703

REACTIONS (10)
  - Chronic obstructive pulmonary disease [Unknown]
  - Trigeminal neuralgia [Unknown]
  - Renal impairment [Unknown]
  - Hypertension [Unknown]
  - Blood sodium increased [Unknown]
  - Dyspnoea [Unknown]
  - Adverse drug reaction [Unknown]
  - Renal disorder [Unknown]
  - Product use in unapproved indication [Unknown]
  - Oxygen therapy [Unknown]

NARRATIVE: CASE EVENT DATE: 201703
